FAERS Safety Report 9068919 (Version 1)
Quarter: 2013Q1

REPORT INFORMATION
  Report Type: Spontaneous
  Country: US (occurrence: None)
  Receive Date: 20130213
  Receipt Date: 20130213
  Transmission Date: 20140127
  Serious: Yes (Hospitalization)
  Sender: FDA-Public Use
  Company Number: None

PATIENT
  Age: 71 Year
  Sex: Female
  Weight: 68.95 kg

DRUGS (1)
  1. BENICAR SANKO [Suspect]
     Indication: HYPERTENSION
     Dates: start: 20121112, end: 20121226

REACTIONS (4)
  - Hypertension [None]
  - Back pain [None]
  - Muscle spasms [None]
  - Blood potassium decreased [None]
